FAERS Safety Report 6389122-6 (Version None)
Quarter: 2009Q4

REPORT INFORMATION
  Report Type: 
  Country: None (occurrence: None)
  Receive Date: 20091006
  Receipt Date: 20071116
  Transmission Date: 20100525
  Serious: Yes (Other)
  Sender: FDA-Public Use
  Company Number: US-ASTRAZENECA-2007UW14918

PATIENT
  Age: 16020 Day
  Sex: Female

DRUGS (17)
  1. SEROQUEL [Suspect]
     Indication: DEPRESSION
     Dosage: 75-300 MG
     Route: 048
     Dates: start: 20040901, end: 20060201
  2. SEROQUEL [Suspect]
     Indication: SLEEP DISORDER
     Dosage: 75-300 MG
     Route: 048
     Dates: start: 20040901, end: 20060201
  3. SEROQUEL [Suspect]
     Dosage: 25MG -300MG AT NIGHT
     Route: 048
     Dates: start: 20050525
  4. SEROQUEL [Suspect]
     Dosage: 25MG -300MG AT NIGHT
     Route: 048
     Dates: start: 20050525
  5. WELLBUTRIN [Concomitant]
     Dosage: 150MG - 300MG
     Dates: start: 20050913
  6. ZOLOFT [Concomitant]
     Dosage: 50MG -100MG
     Dates: start: 20051025
  7. ATIVAN [Concomitant]
     Indication: ANXIETY
     Dosage: 3 MG -15 MG
     Dates: start: 20061208
  8. ATIVAN [Concomitant]
     Indication: PANIC ATTACK
     Dosage: 3 MG -15 MG
     Dates: start: 20061208
  9. LEXAPRO [Concomitant]
     Dosage: 5MG -20MG
     Dates: start: 20041118
  10. NEURONTIN [Concomitant]
     Dosage: 300MG -1500MG
     Dates: start: 20041118
  11. REMERON [Concomitant]
     Dates: start: 20051025
  12. COPAXONE [Concomitant]
     Indication: MULTIPLE SCLEROSIS
     Dosage: 01MG -40MG
     Route: 030
     Dates: start: 20041101
  13. AMBIEN CR [Concomitant]
     Indication: SLEEP DISORDER
     Dosage: 10MG 12.5MG
     Route: 048
  14. PREDNISONE TAB [Concomitant]
     Route: 048
     Dates: start: 20060322
  15. ASPIRIN [Concomitant]
     Dates: start: 20060228
  16. DYAZIDE [Concomitant]
     Dates: start: 20070410
  17. CYMBALTA [Concomitant]
     Dates: start: 20070410

REACTIONS (3)
  - NEUROPATHY PERIPHERAL [None]
  - TYPE 1 DIABETES MELLITUS [None]
  - TYPE 2 DIABETES MELLITUS [None]
